FAERS Safety Report 8979635 (Version 1)
Quarter: 2012Q4

REPORT INFORMATION
  Report Type: 
  Country: US (occurrence: US)
  Receive Date: 20121221
  Receipt Date: 20121221
  Transmission Date: 20130627
  Serious: Yes (Hospitalization)
  Sender: FDA-Public Use
  Company Number: US-BAYER-2012-133490

PATIENT
  Age: 28 Year
  Sex: Female
  Weight: 75 kg

DRUGS (9)
  1. BEYAZ [Suspect]
  2. YAZ [Suspect]
  3. HYDROXYCHLOROQUINE [Concomitant]
  4. DICLOFENAC SODIUM [Concomitant]
  5. PREDNISONE [Concomitant]
  6. AMOXICILLIN W/CLAVULANIC ACID [Concomitant]
  7. AMOXICILLIN [Concomitant]
  8. AZITHROMYCIN [Concomitant]
  9. FERROUS SULFATE [Concomitant]

REACTIONS (1)
  - Deep vein thrombosis [None]
